FAERS Safety Report 9851612 (Version 1)
Quarter: 2014Q1

REPORT INFORMATION
  Report Type: Spontaneous
  Country: US (occurrence: US)
  Receive Date: 20140129
  Receipt Date: 20140129
  Transmission Date: 20141002
  Serious: No
  Sender: FDA-Public Use
  Company Number: US-BIOGENIDEC-2014BI007200

PATIENT
  Sex: Female

DRUGS (6)
  1. TECFIDERA [Suspect]
     Indication: MULTIPLE SCLEROSIS
     Route: 048
     Dates: start: 201312
  2. TECFIDERA [Suspect]
     Indication: MULTIPLE SCLEROSIS
     Route: 048
     Dates: start: 201312
  3. SEASONIQUE [Concomitant]
  4. AMBEIN [Concomitant]
  5. WELLBUTRIN [Concomitant]
  6. ASPIRIN [Concomitant]

REACTIONS (2)
  - Asthenia [Unknown]
  - Multiple sclerosis relapse [Unknown]
